FAERS Safety Report 8182370 (Version 3)
Quarter: 2013Q1

REPORT INFORMATION
  Report Type: Spontaneous
  Country: US (occurrence: US)
  Receive Date: 20111014
  Receipt Date: 20130311
  Transmission Date: 20140127
  Serious: Yes (Other)
  Sender: FDA-Public Use
  Company Number: US-ROCHE-1001547

PATIENT
  Age: 26 None
  Sex: Male
  Weight: 106.69 kg

DRUGS (2)
  1. ACCUTANE [Suspect]
     Indication: ACNE
     Route: 048
     Dates: start: 19930215, end: 19930406
  2. ACCUTANE [Suspect]
     Route: 048
     Dates: start: 200111, end: 200202

REACTIONS (8)
  - Crohn^s disease [Unknown]
  - Inflammatory bowel disease [Unknown]
  - Injury [Unknown]
  - Depression [Unknown]
  - Anal fissure [Unknown]
  - Anal fistula [Unknown]
  - Irritable bowel syndrome [Unknown]
  - Nasal dryness [Unknown]
